FAERS Safety Report 8302129-4 (Version None)
Quarter: 2012Q1

REPORT INFORMATION
  Report Type: 
  Country: None (occurrence: None)
  Receive Date: 20120330
  Receipt Date: 20120319
  Transmission Date: 20120608
  Serious: Yes (Hospitalization)
  Sender: FDA-Public Use
  Company Number: WAES 1203USA02721

PATIENT
  Age: 30 Year
  Sex: Male

DRUGS (1)
  1. ANTIVENIN (LATRODECTUS MACTANS) [Suspect]
     Indication: ARTHROPOD BITE
     Dosage: UNK

REACTIONS (1)
  - FLUSHING [None]
